FAERS Safety Report 24612834 (Version 1)
Quarter: 2024Q4

REPORT INFORMATION
  Report Type: Spontaneous
  Country: US (occurrence: None)
  Receive Date: 20241112
  Receipt Date: 20241112
  Transmission Date: 20250115
  Serious: No
  Sender: Public
  Company Number: None

PATIENT
  Age: 83 Year
  Sex: Male

DRUGS (2)
  1. MELOXICAM [Suspect]
     Active Substance: MELOXICAM
     Indication: Pain
     Route: 048
     Dates: start: 20240625, end: 20240710
  2. APIXABAN [Suspect]
     Active Substance: APIXABAN

REACTIONS (3)
  - Gastric ulcer haemorrhage [None]
  - Fall [None]
  - Rectal haemorrhage [None]

NARRATIVE: CASE EVENT DATE: 20240722
